FAERS Safety Report 24022266 (Version 1)
Quarter: 2024Q2

REPORT INFORMATION
  Report Type: Report from Study
  Country: JP (occurrence: JP)
  Receive Date: 20240627
  Receipt Date: 20240627
  Transmission Date: 20240715
  Serious: No
  Sender: FDA-Public Use
  Company Number: JP-CHUGAI-2024011861

PATIENT
  Age: 67 Year
  Sex: Male
  Weight: 60.0 kg

DRUGS (5)
  1. VABYSMO [Suspect]
     Active Substance: FARICIMAB\FARICIMAB-SVOA
     Indication: Neovascular age-related macular degeneration
     Dosage: 6.0 MILLIGRAM,LIGHT EYE
     Route: 050
     Dates: start: 20230310, end: 20230310
  2. VABYSMO [Suspect]
     Active Substance: FARICIMAB\FARICIMAB-SVOA
     Dosage: LIGHT EYE
     Route: 050
     Dates: start: 20230407, end: 20230407
  3. VABYSMO [Suspect]
     Active Substance: FARICIMAB\FARICIMAB-SVOA
     Dosage: LIGHT EYE
     Route: 050
     Dates: start: 20230512, end: 20230512
  4. VABYSMO [Suspect]
     Active Substance: FARICIMAB\FARICIMAB-SVOA
     Dosage: LIGHT EYE
     Route: 050
     Dates: start: 20230616, end: 20230616
  5. VABYSMO [Suspect]
     Active Substance: FARICIMAB\FARICIMAB-SVOA
     Dosage: LIGHT EYE
     Route: 050
     Dates: start: 20230818, end: 20230818

REACTIONS (2)
  - Drug ineffective [Unknown]
  - No adverse event [Unknown]

NARRATIVE: CASE EVENT DATE: 20231013
